FAERS Safety Report 10012624 (Version 1)
Quarter: 2014Q1

REPORT INFORMATION
  Report Type: Spontaneous
  Country: US (occurrence: US)
  Receive Date: 20140314
  Receipt Date: 20140314
  Transmission Date: 20141002
  Serious: No
  Sender: FDA-Public Use
  Company Number: US-ASTRAZENECA-2013SE87510

PATIENT
  Age: 56 Year
  Sex: Female

DRUGS (4)
  1. INDERAL [Suspect]
     Route: 065
  2. ZOMIG [Suspect]
     Route: 048
  3. VIIBRYD [Suspect]
     Indication: ANTIDEPRESSANT THERAPY
     Route: 065
  4. SILVER SOLUTION [Suspect]
     Route: 065

REACTIONS (3)
  - Hypertension [Unknown]
  - Cough [Unknown]
  - Drug dose omission [Unknown]
